FAERS Safety Report 9351838 (Version 1)
Quarter: 2013Q2

REPORT INFORMATION
  Report Type: Spontaneous
  Country: IT (occurrence: None)
  Receive Date: 20130612
  Receipt Date: 20130612
  Transmission Date: 20140414
  Serious: Yes (Other)
  Sender: FDA-Public Use
  Company Number: FK201301970

PATIENT
  Age: 73 Year
  Sex: Male
  Weight: 49 kg

DRUGS (4)
  1. OXALIPLATIN (MANUFACTURER UNKNOWN) (OXALIPLATIN) (OXALIPLATIN) [Suspect]
     Indication: GASTRIC CANCER
     Route: 042
     Dates: start: 20120918, end: 20130205
  2. FLUOROURACIL [Suspect]
     Indication: GASTRIC CANCER
     Dosage: CYCLICAL
     Dates: start: 20120918, end: 20130205
  3. HERCEPTIN (TRASTUZUMAB) [Concomitant]
  4. LEVOFOLINIC ACID (FOLINIC ACID) [Concomitant]

REACTIONS (3)
  - Anaemia [None]
  - Gamma-glutamyltransferase increased [None]
  - Hyperbilirubinaemia [None]
